FAERS Safety Report 21996408 (Version 2)
Quarter: 2023Q1

REPORT INFORMATION
  Report Type: Spontaneous
  Country: US (occurrence: US)
  Receive Date: 20230215
  Receipt Date: 20230301
  Transmission Date: 20230417
  Serious: No
  Sender: FDA-Public Use
  Company Number: US-PFIZER INC-202300066824

PATIENT
  Age: 43 Year
  Sex: Female
  Weight: 41.91 kg

DRUGS (1)
  1. IBRANCE [Suspect]
     Active Substance: PALBOCICLIB
     Dosage: 100 MG, CYCLIC (1 CAPSULE BY MOUTH DAILY FOR 21 DAYS AND THEN FOLLOWED BY 7 DAYS OFF)

REACTIONS (1)
  - Skin lesion [Unknown]
